FAERS Safety Report 6750412-6 (Version None)
Quarter: 2010Q2

REPORT INFORMATION
  Report Type: 
  Country: None (occurrence: None)
  Receive Date: 20100601
  Receipt Date: 20100519
  Transmission Date: 20101027
  Serious: Yes (Hospitalization)
  Sender: FDA-Public Use
  Company Number: CA-ELI_LILLY_AND_COMPANY-CA201005005473

PATIENT
  Age: 14 Year
  Sex: Female
  Weight: 43.537 kg

DRUGS (4)
  1. ZYPREXA ZYDIS [Suspect]
     Indication: ANOREXIA NERVOSA
     Dosage: 2.5 MG, DAILY (1/D)
     Route: 048
     Dates: start: 20081209, end: 20090302
  2. CLONAZEPAM [Concomitant]
     Dates: end: 20090309
  3. SERTRALINE HCL [Concomitant]
     Indication: ANXIETY
     Dosage: 75 MG, DAILY (1/D)
     Dates: start: 20090223, end: 20090309
  4. LAMOTRIGINE [Concomitant]

REACTIONS (4)
  - ALANINE AMINOTRANSFERASE INCREASED [None]
  - ASPARTATE AMINOTRANSFERASE INCREASED [None]
  - BLOOD LACTATE DEHYDROGENASE INCREASED [None]
  - OFF LABEL USE [None]
